FAERS Safety Report 6311793-0 (Version None)
Quarter: 2009Q3

REPORT INFORMATION
  Report Type: 
  Country: None (occurrence: None)
  Receive Date: 20090813
  Receipt Date: 20090813
  Transmission Date: 20100115
  Serious: Yes (Life-Threatening)
  Sender: FDA-Public Use
  Company Number: None

PATIENT
  Age: 55 Year
  Sex: Male
  Weight: 76.2043 kg

DRUGS (1)
  1. XANAX [Suspect]
     Indication: ANXIETY
     Dosage: 1 MG Q8HOURS PO
     Route: 048
     Dates: start: 20000722

REACTIONS (2)
  - ANAPHYLACTIC REACTION [None]
  - PRODUCT SUBSTITUTION ISSUE [None]
